FAERS Safety Report 18118926 (Version 2)
Quarter: 2020Q3

REPORT INFORMATION
  Report Type: Spontaneous
  Country: US (occurrence: US)
  Receive Date: 20200806
  Receipt Date: 20200811
  Transmission Date: 20201103
  Serious: Yes (Other)
  Sender: FDA-Public Use
  Company Number: US-PFIZER INC-2020297039

PATIENT
  Age: 52 Year
  Sex: Female

DRUGS (1)
  1. LYRICA [Suspect]
     Active Substance: PREGABALIN
     Dosage: UNK

REACTIONS (7)
  - Systemic lupus erythematosus [Unknown]
  - Illness [Unknown]
  - Back pain [Unknown]
  - Withdrawal syndrome [Unknown]
  - Osteonecrosis [Unknown]
  - Nausea [Unknown]
  - Pain [Unknown]
